FAERS Safety Report 10329644 (Version 2)
Quarter: 2016Q3

REPORT INFORMATION
  Report Type: Spontaneous
  Country: US (occurrence: US)
  Receive Date: 20140721
  Receipt Date: 20160715
  Transmission Date: 20161109
  Serious: Yes (Death, Hospitalization, Other)
  Sender: FDA-Public Use
  Company Number: US-ASTELLAS-2014US008443

PATIENT
  Age: 71 Year
  Sex: Female

DRUGS (5)
  1. METOPROLOL. [Concomitant]
     Active Substance: METOPROLOL
     Indication: CARDIAC FAILURE
     Route: 048
  2. TARCEVA [Suspect]
     Active Substance: ERLOTINIB HYDROCHLORIDE
     Indication: LUNG NEOPLASM MALIGNANT
     Route: 065
     Dates: start: 20140516, end: 20140712
  3. VERAPAMIL [Concomitant]
     Active Substance: VERAPAMIL HYDROCHLORIDE
     Indication: CARDIAC FAILURE
     Dosage: CR 150 MG, ONCE DAILY
     Route: 048
  4. ALPRAZOLAM. [Concomitant]
     Active Substance: ALPRAZOLAM
     Indication: ANXIETY
     Dosage: 0.5 MG, AS NEEDED 3 IN 1 D
     Route: 048
     Dates: start: 201407
  5. FUROSEMIDE. [Concomitant]
     Active Substance: FUROSEMIDE
     Indication: CARDIAC FAILURE
     Route: 048

REACTIONS (9)
  - Nausea [Unknown]
  - Diarrhoea [Unknown]
  - Respiratory failure [Fatal]
  - Vomiting [Unknown]
  - Acute kidney injury [Fatal]
  - Abdominal distension [Unknown]
  - Small intestinal obstruction [Fatal]
  - Abdominal pain [Unknown]
  - Anaemia [Fatal]

NARRATIVE: CASE EVENT DATE: 20140621
